FAERS Safety Report 14417625 (Version 1)
Quarter: 2018Q1

REPORT INFORMATION
  Report Type: Spontaneous
  Country: US (occurrence: US)
  Receive Date: 20180119
  Receipt Date: 20180119
  Transmission Date: 20180509
  Serious: No
  Sender: FDA-Public Use
  Company Number: None

PATIENT
  Age: 59 Year
  Sex: Male

DRUGS (1)
  1. CAPECITABINE TAB 500 MG BER [Suspect]
     Active Substance: CAPECITABINE

REACTIONS (4)
  - Dizziness [None]
  - Nausea [None]
  - Diarrhoea [None]
  - Haematochezia [None]

NARRATIVE: CASE EVENT DATE: 20180102
